FAERS Safety Report 9223122 (Version 1)
Quarter: 2013Q2

REPORT INFORMATION
  Report Type: Spontaneous
  Country: US (occurrence: None)
  Receive Date: 20130409
  Receipt Date: 20130409
  Transmission Date: 20140414
  Serious: Yes (Life-Threatening, Hospitalization)
  Sender: FDA-Public Use
  Company Number: None

PATIENT
  Age: 25 Year
  Sex: Female
  Weight: 83.01 kg

DRUGS (1)
  1. GENERESS FE [Suspect]
     Indication: CONTRACEPTION
     Dosage: 1 PILL DAILY MOUTH
     Route: 048
     Dates: start: 20130220, end: 20130320

REACTIONS (1)
  - Thrombosis [None]
